FAERS Safety Report 7648942-8 (Version None)
Quarter: 2011Q3

REPORT INFORMATION
  Report Type: 
  Country: None (occurrence: None)
  Receive Date: 20110801
  Receipt Date: 20110729
  Transmission Date: 20111222
  Serious: Yes (Other)
  Sender: FDA-Public Use
  Company Number: US-BRISTOL-MYERS SQUIBB COMPANY-15935893

PATIENT
  Age: 30 Year
  Sex: Male

DRUGS (1)
  1. ABILIFY [Suspect]
     Dosage: INTERRUPTED ON 23JUL11, RESTARTED ON 28JUL11

REACTIONS (2)
  - TREATMENT NONCOMPLIANCE [None]
  - PSYCHOTIC DISORDER [None]
